FAERS Safety Report 22040290 (Version 1)
Quarter: 2023Q1

REPORT INFORMATION
  Report Type: Report from Study
  Country: US (occurrence: US)
  Receive Date: 20230227
  Receipt Date: 20230227
  Transmission Date: 20230418
  Serious: Yes (Other)
  Sender: FDA-Public Use
  Company Number: US-GILEAD-2023-0618186

PATIENT
  Age: 43 Year
  Sex: Female

DRUGS (1)
  1. SACITUZUMAB GOVITECAN-HZIY [Suspect]
     Active Substance: SACITUZUMAB GOVITECAN-HZIY
     Indication: Breast cancer female
     Dosage: 900 MG ON D1 AND D8 EVERY 21 DAYS
     Route: 042
     Dates: start: 20230128

REACTIONS (2)
  - Haematochezia [Unknown]
  - Alopecia [Unknown]
